FAERS Safety Report 9316079 (Version 1)
Quarter: 2013Q2

REPORT INFORMATION
  Report Type: Spontaneous
  Country: US (occurrence: US)
  Receive Date: 20130530
  Receipt Date: 20130530
  Transmission Date: 20140414
  Serious: Yes (Other)
  Sender: FDA-Public Use
  Company Number: US-AMGEN-USASP2013037681

PATIENT
  Age: 72 Year
  Sex: Female

DRUGS (6)
  1. PROLIA [Suspect]
     Indication: OSTEOPOROSIS POSTMENOPAUSAL
     Dosage: UNK
     Dates: start: 201305
  2. MULTAQ [Concomitant]
  3. LIPITOR [Concomitant]
  4. LISINOPRIL [Concomitant]
  5. COREG [Concomitant]
  6. TRAMADOL [Concomitant]

REACTIONS (3)
  - Arteriosclerosis [Unknown]
  - Alopecia [Unknown]
  - Nail disorder [Unknown]
